FAERS Safety Report 7626686-6 (Version None)
Quarter: 2011Q3

REPORT INFORMATION
  Report Type: 
  Country: None (occurrence: None)
  Receive Date: 20110721
  Receipt Date: 20110713
  Transmission Date: 20111222
  Serious: Yes (Other)
  Sender: FDA-Public Use
  Company Number: GB-ROCHE-785613

PATIENT
  Sex: Female

DRUGS (3)
  1. YASMIN [Concomitant]
     Route: 065
  2. ISOTRETINOIN [Suspect]
     Route: 065
     Dates: start: 20110524
  3. ISOTRETINOIN [Suspect]
     Route: 065
     Dates: start: 20110511

REACTIONS (1)
  - INFECTIOUS MONONUCLEOSIS [None]
